FAERS Safety Report 7585719-6 (Version None)
Quarter: 2011Q2

REPORT INFORMATION
  Report Type: 
  Country: None (occurrence: None)
  Receive Date: 20110629
  Receipt Date: 20110629
  Transmission Date: 20111010
  Serious: Yes (Life-Threatening, Hospitalization)
  Sender: FDA-Public Use
  Company Number: None

PATIENT
  Age: 86 Year
  Sex: Female
  Weight: 82.5547 kg

DRUGS (1)
  1. SYNTHROID [Suspect]
     Indication: THYROID FUNCTION TEST ABNORMAL
     Dosage: EQ 25MCG
     Dates: start: 20110520, end: 20110603

REACTIONS (8)
  - TREMOR [None]
  - HALLUCINATION [None]
  - MYOCARDIAL INFARCTION [None]
  - CONFUSIONAL STATE [None]
  - MOOD ALTERED [None]
  - HYPERHIDROSIS [None]
  - FATIGUE [None]
  - PULMONARY EMBOLISM [None]
